FAERS Safety Report 23843784 (Version 2)
Quarter: 2024Q2

REPORT INFORMATION
  Report Type: Report from Study
  Country: US (occurrence: US)
  Receive Date: 20240510
  Receipt Date: 20240514
  Transmission Date: 20240716
  Serious: No
  Sender: FDA-Public Use
  Company Number: US-ABBVIE-5753823

PATIENT
  Sex: Male
  Weight: 74.842 kg

DRUGS (5)
  1. CREON [Suspect]
     Active Substance: PANCRELIPASE AMYLASE\PANCRELIPASE LIPASE\PANCRELIPASE PROTEASE
     Indication: Pancreatitis
     Dosage: FORM STRENGTH: 36000 UNIT?FREQUENCY TEXT: 2 CAPS EACH MEAL
     Route: 048
     Dates: start: 202402
  2. VITAMIN D3 [Concomitant]
     Active Substance: CHOLECALCIFEROL
     Indication: Vitamin supplementation
  3. FOLIC ACID [Concomitant]
     Active Substance: FOLIC ACID
     Indication: Vitamin supplementation
  4. VITAMIN B3 [Concomitant]
     Active Substance: NIACIN
     Indication: Vitamin supplementation
  5. POTASSIUM [Concomitant]
     Active Substance: POTASSIUM
     Indication: Mineral supplementation

REACTIONS (1)
  - Amnesia [Not Recovered/Not Resolved]

NARRATIVE: CASE EVENT DATE: 20240101
